FAERS Safety Report 8305937-9 (Version None)
Quarter: 2012Q2

REPORT INFORMATION
  Report Type: 
  Country: None (occurrence: None)
  Receive Date: 20120423
  Receipt Date: 20120416
  Transmission Date: 20120825
  Serious: Yes (Hospitalization, Other)
  Sender: FDA-Public Use
  Company Number: US-ELI_LILLY_AND_COMPANY-US201202005998

PATIENT
  Age: 74 Year
  Sex: Female
  Weight: 80.72 kg

DRUGS (17)
  1. FORTEO [Suspect]
     Dosage: 20 UG, UNK
  2. PRILOSEC [Concomitant]
  3. CALTRATE D                         /00944201/ [Concomitant]
  4. FORTEO [Suspect]
     Dosage: 20 UG, UNK
  5. SILYMARIN [Concomitant]
  6. ADVAIR DISKUS 100/50 [Concomitant]
     Dosage: UNK, PRN
  7. MORPHINE SULFATE [Concomitant]
     Dosage: 30 MG, UNK
  8. LASIX [Concomitant]
     Dosage: 20 MG, UNK
  9. CHROMAGEN [Concomitant]
  10. POTASSIUM CHLORIDE [Concomitant]
     Dosage: 10 MEQ, UNK
  11. PRADAXA [Concomitant]
  12. ZOFRAN [Concomitant]
     Dosage: UNK, PRN
  13. CARDURA [Concomitant]
     Dosage: 4 MG, UNK
  14. LORTAB [Concomitant]
     Dosage: UNK, PRN
  15. TIKOSYN [Concomitant]
  16. DIAZEPAM [Concomitant]
     Dosage: 5 MG, UNK
  17. BENADRYL [Concomitant]
     Dosage: UNK, PRN

REACTIONS (5)
  - GASTRIC ANTRAL VASCULAR ECTASIA [None]
  - FATIGUE [None]
  - INJECTION SITE PAIN [None]
  - BLOOD COUNT ABNORMAL [None]
  - ANAEMIA [None]
